FAERS Safety Report 23307267 (Version 1)
Quarter: 2023Q4

REPORT INFORMATION
  Report Type: Spontaneous
  Country: US (occurrence: US)
  Receive Date: 20231218
  Receipt Date: 20231218
  Transmission Date: 20240109
  Serious: No
  Sender: FDA-Public Use
  Company Number: US-009507513-2312USA004147

PATIENT
  Age: 85 Year
  Sex: Male
  Weight: 87.075 kg

DRUGS (27)
  1. KEYTRUDA [Suspect]
     Active Substance: PEMBROLIZUMAB
     Indication: Renal cancer
     Dosage: ROUTE: INFUSION
  2. LENVATINIB MESYLATE [Suspect]
     Active Substance: LENVATINIB MESYLATE
     Indication: Renal cancer
     Dosage: 4 MILLIGRAM DAILY
     Route: 048
  3. ALBUTEROL SULFATE [Concomitant]
     Active Substance: ALBUTEROL SULFATE
  4. ATORVASTATIN [Concomitant]
     Active Substance: ATORVASTATIN
  5. BETAMETHASONE [Concomitant]
     Active Substance: BETAMETHASONE\BETAMETHASONE DIPROPIONATE
  6. CARVEDILOL [Concomitant]
     Active Substance: CARVEDILOL
  7. CLOTRIMAZOLE [Concomitant]
     Active Substance: CLOTRIMAZOLE
  8. DOXYCYCLINE [Concomitant]
     Active Substance: DOXYCYCLINE
  9. ECONAZOLE [Concomitant]
     Active Substance: ECONAZOLE
  10. ELIQUIS [Concomitant]
     Active Substance: APIXABAN
  11. FUROSEMIDE [Concomitant]
     Active Substance: FUROSEMIDE
  12. HYDROCORTISONE [Concomitant]
     Active Substance: HYDROCORTISONE
  13. LACTULOSE [Concomitant]
     Active Substance: LACTULOSE
  14. LANTUS [Concomitant]
     Active Substance: INSULIN GLARGINE
  15. LATANOPROST [Concomitant]
     Active Substance: LATANOPROST
  16. LEVOTHYROXINE [Concomitant]
     Active Substance: LEVOTHYROXINE
  17. LOSARTAN [Concomitant]
     Active Substance: LOSARTAN
  18. MEGESTROL [Concomitant]
     Active Substance: MEGESTROL
  19. MUPIROCIN [Concomitant]
     Active Substance: MUPIROCIN
  20. NAPROXEN [Concomitant]
     Active Substance: NAPROXEN
  21. POTASSIUM [Concomitant]
     Active Substance: POTASSIUM
  22. SPIRONOLACTONE [Concomitant]
     Active Substance: SPIRONOLACTONE
  23. TAMSULOSIN [Concomitant]
     Active Substance: TAMSULOSIN
  24. TRADJENTA [Concomitant]
     Active Substance: LINAGLIPTIN
  25. TRELEGY ELLIPTA [Concomitant]
     Active Substance: FLUTICASONE FUROATE\UMECLIDINIUM BROMIDE\VILANTEROL TRIFENATATE
  26. TRIAMCINOLONE [Concomitant]
     Active Substance: TRIAMCINOLONE
  27. UREA [Concomitant]
     Active Substance: UREA

REACTIONS (4)
  - Localised infection [Recovering/Resolving]
  - Scab [Recovering/Resolving]
  - Skin disorder [Recovering/Resolving]
  - Product use issue [Unknown]
